FAERS Safety Report 22386750 (Version 2)
Quarter: 2023Q2

REPORT INFORMATION
  Report Type: Spontaneous
  Country: US (occurrence: US)
  Receive Date: 20230531
  Receipt Date: 20230621
  Transmission Date: 20230722
  Serious: No
  Sender: FDA-Public Use
  Company Number: US-BoehringerIngelheim-2023-BI-240849

PATIENT
  Sex: Female

DRUGS (3)
  1. JARDIANCE [Suspect]
     Active Substance: EMPAGLIFLOZIN
     Indication: Product used for unknown indication
  2. Insulin-type unspecified [Concomitant]
     Indication: Product used for unknown indication
  3. Insulin-type unspecified [Concomitant]

REACTIONS (4)
  - Palpitations [Not Recovered/Not Resolved]
  - Cardiac disorder [Unknown]
  - Lung disorder [Unknown]
  - Glycosylated haemoglobin increased [Unknown]

NARRATIVE: CASE EVENT DATE: 20230602
